FAERS Safety Report 5246240-3 (Version None)
Quarter: 2007Q1

REPORT INFORMATION
  Report Type: 
  Country: None (occurrence: None)
  Receive Date: 20070221
  Receipt Date: 20070208
  Transmission Date: 20070707
  Serious: Yes (Other)
  Sender: FDA-Public Use
  Company Number: GXKR2006JP08451

PATIENT
  Age: 80 Year
  Sex: Male

DRUGS (8)
  1. RIMACTANE [Suspect]
     Indication: TUBERCULOSIS
     Dosage: 450 MG, ORAL
     Route: 048
     Dates: start: 20060630
  2. ETHAMBUTOL HCL [Concomitant]
  3. ISONIAZID [Concomitant]
  4. DEPAS (ETIZOLAM) [Concomitant]
  5. ROHYPNOL (FLUNITRAZEPAM) [Concomitant]
  6. ENSURE (AMINO ACIDS NOS, MINERALS NOS, VITAMINS NOS) [Concomitant]
  7. AVISHOT (NAFTOPIDIL) [Concomitant]
  8. LANIRAPID (METILDIGOXIN) [Concomitant]

REACTIONS (3)
  - DYSURIA [None]
  - HAEMATURIA [None]
  - URINE ANALYSIS ABNORMAL [None]
